FAERS Safety Report 16558256 (Version 1)
Quarter: 2019Q3

REPORT INFORMATION
  Report Type: Spontaneous
  Country: IT (occurrence: IT)
  Receive Date: 20190711
  Receipt Date: 20190711
  Transmission Date: 20191004
  Serious: Yes (Congenital Anomaly)
  Sender: FDA-Public Use
  Company Number: IT-TEVA-2019-IT-1074905

PATIENT
  Age: 74 Year
  Sex: Female

DRUGS (1)
  1. ANASTROZOLO TEVA 1 MG COMPRESSE RIVESTITE CON FILM [Suspect]
     Active Substance: ANASTROZOLE
     Dosage: 1 MILLIGRAM DAILY;
     Route: 048
     Dates: start: 20190603, end: 20190614

REACTIONS (4)
  - Asthenia [Recovered/Resolved]
  - Pseudoxanthoma elasticum [Recovered/Resolved]
  - Arthralgia [Recovered/Resolved]
  - Myalgia [Recovered/Resolved]
